FAERS Safety Report 5207709-0 (Version None)
Quarter: 2006Q4

REPORT INFORMATION
  Report Type: 
  Country: None (occurrence: None)
  Receive Date: 20061030
  Receipt Date: 20060815
  Transmission Date: 20070319
  Serious: No
  Sender: FDA-Public Use
  Company Number: 2006CT000690

PATIENT
  Age: 43 Year
  Sex: Female
  Weight: 61.2356 kg

DRUGS (11)
  1. VENTAVIS [Suspect]
     Indication: PULMONARY HYPERTENSION
     Dosage: 5 UG; 6 TO 9X/DAY; INH
     Route: 055
     Dates: start: 20060713
  2. PREDNISONE [Concomitant]
  3. TRACLEER [Concomitant]
  4. SILDENAFIL CITRATE [Concomitant]
  5. NEXIUM [Concomitant]
  6. FUROSEMIDE [Concomitant]
  7. POTASSIUM CHLORIDE [Concomitant]
  8. METHOTREXATE [Concomitant]
  9. METOLAZONE [Concomitant]
  10. CELEBREX [Concomitant]
  11. HYDROCODONE BITARTRATE [Concomitant]

REACTIONS (2)
  - ABDOMINAL PAIN [None]
  - DIARRHOEA [None]
